FAERS Safety Report 9802294 (Version 1)
Quarter: 2014Q1

REPORT INFORMATION
  Report Type: Report from Study
  Country: DE (occurrence: DE)
  Receive Date: 20140107
  Receipt Date: 20140107
  Transmission Date: 20141002
  Serious: Yes (Other)
  Sender: FDA-Public Use
  Company Number: DE-BAXTER-2014BAX000297

PATIENT
  Sex: 0

DRUGS (5)
  1. HOLOXAN 3.00 G [Suspect]
     Indication: SARCOMA
     Dosage: 4 G/M2 OVER 24 H ON DAYS 1 AND 3
     Route: 042
  2. UROMITEXAN 400 MG [Suspect]
     Indication: SARCOMA
  3. DOXORUBICIN [Suspect]
     Indication: SARCOMA
     Dosage: OVER 4 HOURS ON DAY 1
     Route: 042
  4. GRANULOCYTE COLONY-STIMULATING FACTOR NOS [Concomitant]
     Indication: PRODUCT USED FOR UNKNOWN INDICATION
     Route: 058
  5. BICARBONATE [Concomitant]
     Indication: PRODUCT USED FOR UNKNOWN INDICATION

REACTIONS (1)
  - Disease progression [Unknown]
